FAERS Safety Report 17170903 (Version 1)
Quarter: 2019Q4

REPORT INFORMATION
  Report Type: Spontaneous
  Country: US (occurrence: US)
  Receive Date: 20191218
  Receipt Date: 20191218
  Transmission Date: 20200122
  Serious: Yes (Hospitalization)
  Sender: FDA-Public Use
  Company Number: US-MYLANLABS-2019M1125946

PATIENT
  Age: 12 Year
  Sex: Male
  Weight: 43 kg

DRUGS (6)
  1. METHADONE [Suspect]
     Active Substance: METHADONE HYDROCHLORIDE
     Indication: POSTOPERATIVE ANALGESIA
     Dosage: ADMINISTERED OVER....
     Route: 065
  2. HYDROMORPHONE [Suspect]
     Active Substance: HYDROMORPHONE
     Indication: POSTOPERATIVE ANALGESIA
     Dosage: ADMINISTERED OVER POST.....
     Route: 065
  3. MORPHINE [Suspect]
     Active Substance: MORPHINE
     Indication: POSTOPERATIVE ANALGESIA
     Dosage: DOSE: 2 MG/DOSE EVERY 2H....
     Route: 065
  4. DEXMEDETOMIDINE. [Concomitant]
     Active Substance: DEXMEDETOMIDINE
     Indication: POSTOPERATIVE ANALGESIA
     Dosage: DOSE: MAX DOSE 1.5....
     Route: 042
  5. FENTANYL. [Suspect]
     Active Substance: FENTANYL
     Dosage: DOSE: 1 MCG/KG/ DOSE
     Route: 042
  6. FENTANYL. [Suspect]
     Active Substance: FENTANYL
     Indication: POSTOPERATIVE ANALGESIA
     Dosage: ADMINISTERED OVER....
     Route: 042

REACTIONS (2)
  - Postoperative ileus [Recovered/Resolved]
  - Abdominal compartment syndrome [Recovered/Resolved]
